FAERS Safety Report 23785237 (Version 1)
Quarter: 2024Q2

REPORT INFORMATION
  Report Type: Spontaneous
  Country: US (occurrence: US)
  Receive Date: 20240425
  Receipt Date: 20240425
  Transmission Date: 20240716
  Serious: No
  Sender: FDA-Public Use
  Company Number: US-INCYTE CORPORATION-2024IN004165

PATIENT

DRUGS (1)
  1. OPZELURA [Suspect]
     Active Substance: RUXOLITINIB PHOSPHATE
     Indication: Eczema
     Route: 065

REACTIONS (4)
  - Incorrect route of product administration [Unknown]
  - Nausea [Recovering/Resolving]
  - Maternal exposure during pregnancy [Unknown]
  - Vomiting [Recovering/Resolving]
